FAERS Safety Report 6171407-X (Version None)
Quarter: 2009Q2

REPORT INFORMATION
  Report Type: 
  Country: None (occurrence: None)
  Receive Date: 20090429
  Receipt Date: 20090417
  Transmission Date: 20091009
  Serious: Yes (Other)
  Sender: FDA-Public Use
  Company Number: US-PFIZER INC-2008082787

PATIENT
  Sex: Male
  Weight: 3.175 kg

DRUGS (10)
  1. ZOLOFT [Suspect]
     Dosage: UNK
  2. BRETHINE [Concomitant]
     Indication: VAGINAL HAEMORRHAGE
     Dosage: 25 MG, UNK
     Dates: start: 20060303
  3. ROCEPHIN [Concomitant]
     Indication: VAGINAL HAEMORRHAGE
     Dosage: UNK
     Dates: start: 20060303
  4. VITAMIN TAB [Concomitant]
  5. CIPROFLOXACIN [Concomitant]
     Dosage: UNK
     Dates: start: 20050803
  6. LORTAB [Concomitant]
     Indication: PAIN
     Dosage: 500MG/5MG
     Route: 048
     Dates: start: 20050803
  7. PROMETHAZINE HYDROCHLORIDE [Concomitant]
     Dosage: 25 MG, AS NEEDED
     Dates: start: 20050803
  8. TORADOL [Concomitant]
     Dosage: UNK
     Dates: start: 20050803
  9. TEQUIN [Concomitant]
     Dosage: 400 MG, UNK
     Route: 042
     Dates: start: 20050803
  10. ACETAMINOPHEN [Concomitant]
     Dosage: UNK
     Route: 048
     Dates: start: 20050803

REACTIONS (2)
  - CONGENITAL ANOMALY [None]
  - DRUG EXPOSURE DURING PREGNANCY [None]
